FAERS Safety Report 10257522 (Version 1)
Quarter: 2014Q2

REPORT INFORMATION
  Report Type: Spontaneous
  Country: JP (occurrence: JP)
  Receive Date: 20140625
  Receipt Date: 20140625
  Transmission Date: 20141212
  Serious: Yes (Other)
  Sender: FDA-Public Use
  Company Number: PHHY2014JP076475

PATIENT
  Age: 72 Year
  Sex: Male

DRUGS (3)
  1. ZOMETA [Suspect]
     Indication: PLASMA CELL MYELOMA
     Dosage: 4 MG PER ADMINISTRATION
     Dates: start: 20120319, end: 20131126
  2. VELCADE [Concomitant]
     Dosage: UNK UKN, UNK
     Dates: start: 20120409, end: 20140411
  3. REVLIMID [Concomitant]
     Indication: PLASMA CELL MYELOMA
     Dosage: UNK UKN, UNK
     Dates: start: 20140310, end: 20140511

REACTIONS (5)
  - Osteonecrosis of jaw [Not Recovered/Not Resolved]
  - Pain [Unknown]
  - Fistula [Unknown]
  - Bone lesion [Unknown]
  - Exposed bone in jaw [Unknown]
